FAERS Safety Report 8088448-8 (Version None)
Quarter: 2012Q1

REPORT INFORMATION
  Report Type: 
  Country: None (occurrence: None)
  Receive Date: 20120128
  Receipt Date: 20110601
  Transmission Date: 20120608
  Serious: No
  Sender: FDA-Public Use
  Company Number: US-ABBOTT-11P-163-0729669-00

PATIENT
  Age: 44 Year
  Sex: Female

DRUGS (4)
  1. ASACOL [Concomitant]
     Indication: PRODUCT USED FOR UNKNOWN INDICATION
     Dates: start: 19960101
  2. CYMBALTA [Concomitant]
     Indication: PRODUCT USED FOR UNKNOWN INDICATION
     Dates: start: 20060101
  3. ALLEGRA [Concomitant]
     Indication: PRODUCT USED FOR UNKNOWN INDICATION
     Dosage: OTC
     Dates: start: 20060101
  4. HUMIRA [Suspect]
     Indication: CROHN'S DISEASE
     Dates: start: 20070101

REACTIONS (1)
  - INCREASED TENDENCY TO BRUISE [None]
